FAERS Safety Report 7115296-5 (Version None)
Quarter: 2010Q4

REPORT INFORMATION
  Report Type: 
  Country: None (occurrence: None)
  Receive Date: 20101117
  Receipt Date: 20101117
  Transmission Date: 20110411
  Serious: Yes (Hospitalization)
  Sender: FDA-Public Use
  Company Number: None

PATIENT
  Age: 84 Year
  Sex: Male
  Weight: 91.6 kg

DRUGS (2)
  1. CLOPIDOGREL [Suspect]
     Indication: SURGERY
     Dosage: 75 MG EVERY DAY PO
     Route: 048
     Dates: start: 20101027
  2. WARFARIN [Suspect]
     Indication: ATRIAL FIBRILLATION
     Dosage: 5 MG EVERY DAY PO
     Route: 048
     Dates: start: 20100112

REACTIONS (3)
  - HAEMATOMA [None]
  - THROMBOSIS [None]
  - VASCULAR PSEUDOANEURYSM [None]
